FAERS Safety Report 7165754-2 (Version None)
Quarter: 2010Q4

REPORT INFORMATION
  Report Type: 
  Country: None (occurrence: None)
  Receive Date: 20101215
  Receipt Date: 20091222
  Transmission Date: 20110411
  Serious: Yes (Other)
  Sender: FDA-Public Use
  Company Number: US-AMGEN-KDL382083

PATIENT

DRUGS (10)
  1. ENBREL [Suspect]
     Indication: PRODUCT USED FOR UNKNOWN INDICATION
     Dosage: 50 MG, QWK
     Route: 058
  2. SIMVASTATIN [Concomitant]
     Dosage: 5 MG, UNK
  3. METHOTREXATE [Concomitant]
     Dosage: 2.5 MG, UNK
  4. FENOFIBRATE [Concomitant]
     Dosage: 48 MG, UNK
  5. LISINOPRIL [Concomitant]
     Dosage: 2.5 MG, UNK
  6. FOLIC ACID [Concomitant]
     Dosage: 1 MG, UNK
  7. METOPROLOL [Concomitant]
     Dosage: 25 MG, UNK
  8. ASPIRIN [Concomitant]
  9. MULTI-VITAMINS [Concomitant]
  10. TYLENOL PM [Concomitant]

REACTIONS (2)
  - DEPRESSION [None]
  - JOINT SWELLING [None]
